FAERS Safety Report 4700839-9 (Version None)
Quarter: 2005Q2

REPORT INFORMATION
  Report Type: 
  Country: None (occurrence: None)
  Receive Date: 20050209
  Receipt Date: 20050209
  Transmission Date: 20051028
  Serious: Yes (Other)
  Sender: FDA-Public Use
  Company Number: None

PATIENT
  Sex: Male
  Weight: 106.5953 kg

DRUGS (5)
  1. CLOZAPINE [Suspect]
     Indication: AGGRESSION
     Dosage: 450 MGS/D
  2. CLOZAPINE [Suspect]
     Indication: BIPOLAR DISORDER
     Dosage: 450 MGS/D
  3. CLOZAPINE [Suspect]
     Indication: SCHIZOAFFECTIVE DISORDER
     Dosage: 450 MGS/D
  4. DEPAKOTE [Concomitant]
  5. ZOLOFT [Concomitant]

REACTIONS (8)
  - ABNORMAL BEHAVIOUR [None]
  - ACTIVITIES OF DAILY LIVING IMPAIRED [None]
  - AFFECT LABILITY [None]
  - AGGRESSION [None]
  - IMPAIRED SELF-CARE [None]
  - MOOD ALTERED [None]
  - STARING [None]
  - THERAPEUTIC RESPONSE UNEXPECTED WITH DRUG SUBSTITUTION [None]
